FAERS Safety Report 10406109 (Version 1)
Quarter: 2014Q3

REPORT INFORMATION
  Report Type: Spontaneous
  Country: GB (occurrence: GB)
  Receive Date: 20140825
  Receipt Date: 20140825
  Transmission Date: 20150326
  Serious: Yes (Other)
  Sender: FDA-Public Use
  Company Number: GB-WATSON-2014-18155

PATIENT
  Age: 6 Year
  Sex: Male
  Weight: 24 kg

DRUGS (4)
  1. PIRITEZE [Suspect]
     Active Substance: CETIRIZINE HYDROCHLORIDE
     Indication: HYPERSENSITIVITY
     Dosage: UNK UNK, TOTAL; 5 MG, 5 ML SPOONFUL ONCE(TWO DOSES TO BE GIVEN BUT ONLY ONE DOSE TAKEN)
     Route: 048
     Dates: start: 20140730, end: 20140730
  2. CHLORPHENAMINE (UNKNOWN) [Suspect]
     Active Substance: CHLORPHENIRAMINE MALEATE
     Indication: HYPERSENSITIVITY
     Dosage: 2 MG, QID; 5ML (2MG) FOUR TIMES A DAY.
     Route: 048
     Dates: start: 20140721, end: 20140725
  3. PREDNISOLONE SODIUM PHOSPHATE [Concomitant]
     Active Substance: PREDNISOLONE SODIUM PHOSPHATE
     Indication: PRODUCT USED FOR UNKNOWN INDICATION
     Dosage: UNK
     Route: 065
  4. LACTULOSE. [Concomitant]
     Active Substance: LACTULOSE
     Indication: PRODUCT USED FOR UNKNOWN INDICATION
     Dosage: UNK
     Route: 065

REACTIONS (8)
  - Flatulence [Recovered/Resolved]
  - Headache [Not Recovered/Not Resolved]
  - Pain in extremity [Recovered/Resolved]
  - Hallucination [Recovered/Resolved]
  - Urinary incontinence [Not Recovered/Not Resolved]
  - Dyspnoea [Recovered/Resolved]
  - Restlessness [Recovered/Resolved]
  - Malaise [Unknown]

NARRATIVE: CASE EVENT DATE: 20140721
